FAERS Safety Report 25235997 (Version 5)
Quarter: 2025Q3

REPORT INFORMATION
  Report Type: Spontaneous
  Country: US (occurrence: US)
  Receive Date: 20250424
  Receipt Date: 20250806
  Transmission Date: 20251021
  Serious: No
  Sender: NOVARTIS
  Company Number: US-002147023-NVSC2025US067296

PATIENT
  Age: 25 Year
  Sex: Female

DRUGS (1)
  1. COSENTYX [Suspect]
     Active Substance: SECUKINUMAB
     Indication: Hidradenitis
     Route: 058
     Dates: start: 20250419

REACTIONS (2)
  - Injection site hypersensitivity [Unknown]
  - Injection site urticaria [Unknown]

NARRATIVE: CASE EVENT DATE: 20250419
